FAERS Safety Report 23398949 (Version 1)
Quarter: 2024Q1

REPORT INFORMATION
  Report Type: Spontaneous
  Country: US (occurrence: US)
  Receive Date: 20240112
  Receipt Date: 20240112
  Transmission Date: 20240409
  Serious: No
  Sender: FDA-Public Use
  Company Number: US-FOUNDATIONCONSUMERHC-2023-US-017882

PATIENT
  Age: 69 Year
  Sex: Female
  Weight: 62.6 kg

DRUGS (2)
  1. ALAVERT ALLERGY [Suspect]
     Active Substance: LORATADINE
     Indication: Multiple allergies
     Dosage: 1-2 TABS PRN, SWALLOWED WHOLE.
     Route: 048
  2. IBUPROFEN [Concomitant]
     Active Substance: IBUPROFEN
     Dosage: AS NEEDED

REACTIONS (2)
  - Intentional product misuse [Not Recovered/Not Resolved]
  - Malaise [Recovered/Resolved]
